FAERS Safety Report 8247893-8 (Version None)
Quarter: 2012Q1

REPORT INFORMATION
  Report Type: 
  Country: None (occurrence: None)
  Receive Date: 20120330
  Receipt Date: 20120322
  Transmission Date: 20120608
  Serious: Yes (Hospitalization)
  Sender: FDA-Public Use
  Company Number: CG-MERCK-1203USA03434

PATIENT
  Age: 28 Year
  Sex: Male
  Weight: 70 kg

DRUGS (1)
  1. STROMECTOL [Suspect]
     Indication: ONCHOCERCIASIS
     Route: 048
     Dates: start: 20111222

REACTIONS (7)
  - PYURIA [None]
  - CONJUNCTIVAL HAEMORRHAGE [None]
  - LOSS OF CONSCIOUSNESS [None]
  - MALARIA [None]
  - ASTHENIA [None]
  - URINARY TRACT INFECTION [None]
  - ENCEPHALOPATHY [None]
